FAERS Safety Report 9221646 (Version 1)
Quarter: 2013Q2

REPORT INFORMATION
  Report Type: Spontaneous
  Country: US (occurrence: US)
  Receive Date: 20130410
  Receipt Date: 20130410
  Transmission Date: 20140414
  Serious: Yes (Disabling, Other)
  Sender: FDA-Public Use
  Company Number: US-009507513-1304USA002667

PATIENT
  Sex: Female

DRUGS (2)
  1. FOSAMAX [Suspect]
     Dosage: UNK
     Route: 048
     Dates: start: 200302, end: 2011
  2. ALENDRONATE SODIUM [Suspect]
     Dosage: UNK
     Dates: start: 200302, end: 2011

REACTIONS (3)
  - Femur fracture [Unknown]
  - Humerus fracture [Unknown]
  - Hip fracture [Unknown]
